FAERS Safety Report 7831671-5 (Version None)
Quarter: 2011Q4

REPORT INFORMATION
  Report Type: 
  Country: None (occurrence: None)
  Receive Date: 20111021
  Receipt Date: 20111017
  Transmission Date: 20120403
  Serious: Yes (Hospitalization)
  Sender: FDA-Public Use
  Company Number: PHHY2011CN86407

PATIENT
  Age: 50 Year
  Sex: Female

DRUGS (2)
  1. ZOLEDRONOC ACID [Suspect]
     Dosage: UNK
     Route: 042
     Dates: start: 20110716
  2. PREDNISONE TAB [Concomitant]
     Dosage: 2 DF (PILLS), PER DAY

REACTIONS (14)
  - PYREXIA [None]
  - NAUSEA [None]
  - DISCOMFORT [None]
  - DEPRESSED LEVEL OF CONSCIOUSNESS [None]
  - APHAGIA [None]
  - MUSCULAR WEAKNESS [None]
  - MEMORY IMPAIRMENT [None]
  - DIARRHOEA [None]
  - ABDOMINAL PAIN UPPER [None]
  - DIZZINESS [None]
  - TINNITUS [None]
  - HYPOACUSIS [None]
  - VOMITING [None]
  - CHILLS [None]
